FAERS Safety Report 8035810-5 (Version None)
Quarter: 2012Q1

REPORT INFORMATION
  Report Type: 
  Country: None (occurrence: None)
  Receive Date: 20120111
  Receipt Date: 20120102
  Transmission Date: 20120608
  Serious: Yes (Hospitalization, Other)
  Sender: FDA-Public Use
  Company Number: FR-BRISTOL-MYERS SQUIBB COMPANY-16328197

PATIENT
  Age: 76 Year
  Sex: Male

DRUGS (7)
  1. HYDREA [Suspect]
     Dosage: 4 CAPS.
     Route: 048
     Dates: start: 20111101, end: 20111115
  2. PRAVASTATIN [Concomitant]
  3. JANUVIA [Concomitant]
  4. REPAGLINIDE [Concomitant]
  5. PREVISCAN [Concomitant]
  6. DILTIAZEM CD [Concomitant]
  7. AMITRIPTYLINE HCL [Concomitant]

REACTIONS (5)
  - MEDICATION ERROR [None]
  - INCORRECT DOSE ADMINISTERED [None]
  - OVERDOSE [None]
  - PANCYTOPENIA [None]
  - EPISTAXIS [None]
